FAERS Safety Report 8514374-3 (Version None)
Quarter: 2012Q3

REPORT INFORMATION
  Report Type: 
  Country: None (occurrence: None)
  Receive Date: 20120717
  Receipt Date: 20120709
  Transmission Date: 20120928
  Serious: Yes (Other)
  Sender: FDA-Public Use
  Company Number: US-JNJFOC-20120704424

PATIENT
  Sex: Female
  Weight: 81.65 kg

DRUGS (4)
  1. MORPHINE [Suspect]
     Indication: PRODUCT USED FOR UNKNOWN INDICATION
     Route: 065
  2. NUCYNTA ER [Suspect]
     Indication: BACK INJURY
     Dosage: 50 MG 3 TIMES PER DAY
     Route: 048
     Dates: start: 20120702
  3. NUCYNTA ER [Suspect]
     Indication: BACK PAIN
     Dosage: 50 MG 3 TIMES PER DAY
     Route: 048
     Dates: start: 20120702
  4. MORPHINE [Suspect]
     Indication: PRODUCT USED FOR UNKNOWN INDICATION
     Route: 065

REACTIONS (4)
  - OEDEMA PERIPHERAL [None]
  - LARYNGITIS [None]
  - HOT FLUSH [None]
  - WITHDRAWAL SYNDROME [None]
